FAERS Safety Report 10227618 (Version 1)
Quarter: 2014Q2

REPORT INFORMATION
  Report Type: Report from Study
  Country: US (occurrence: US)
  Receive Date: 20140610
  Receipt Date: 20140610
  Transmission Date: 20141212
  Serious: Yes (Other)
  Sender: FDA-Public Use
  Company Number: PHEH2014US011604

PATIENT
  Sex: Female

DRUGS (9)
  1. GILENYA [Suspect]
     Indication: MULTIPLE SCLEROSIS
     Dosage: 0.5 MG, QD
     Route: 048
     Dates: start: 201401
  2. GILENYA [Suspect]
     Dosage: 0.5 MG, QD
     Route: 048
  3. ELAVIL [Concomitant]
  4. WELLBUTRIN [Concomitant]
  5. KLONOPIN [Concomitant]
  6. OXYCODONE [Concomitant]
  7. ZOLPIDEM [Concomitant]
  8. GABAPENTIN [Concomitant]
  9. LISINOPRIL [Concomitant]

REACTIONS (4)
  - Hallucination [Not Recovered/Not Resolved]
  - Fatigue [Not Recovered/Not Resolved]
  - Somnolence [Not Recovered/Not Resolved]
  - Decreased appetite [Not Recovered/Not Resolved]
